FAERS Safety Report 8535638-3 (Version None)
Quarter: 2012Q3

REPORT INFORMATION
  Report Type: 
  Country: None (occurrence: None)
  Receive Date: 20120725
  Receipt Date: 20120719
  Transmission Date: 20120928
  Serious: No
  Sender: FDA-Public Use
  Company Number: US-PFIZER INC-2012151084

PATIENT
  Sex: Female
  Weight: 65.8 kg

DRUGS (1)
  1. PREMARIN [Suspect]
     Indication: HORMONE REPLACEMENT THERAPY
     Dosage: 0.625 MG, 1X/DAY
     Route: 048

REACTIONS (8)
  - HYPERHIDROSIS [None]
  - BONE DENSITY DECREASED [None]
  - POOR QUALITY DRUG ADMINISTERED [None]
  - PRODUCT COUNTERFEIT [None]
  - HOT FLUSH [None]
  - NIGHT SWEATS [None]
  - DRUG INEFFECTIVE [None]
  - HEADACHE [None]
